FAERS Safety Report 9398555 (Version 2)
Quarter: 2013Q3

REPORT INFORMATION
  Report Type: Spontaneous
  Country: JP (occurrence: JP)
  Receive Date: 20130712
  Receipt Date: 20130724
  Transmission Date: 20140515
  Serious: Yes (Other)
  Sender: FDA-Public Use
  Company Number: JP-BRISTOL-MYERS SQUIBB COMPANY-19097393

PATIENT
  Sex: 0

DRUGS (1)
  1. HYDREA [Suspect]
     Indication: THROMBOCYTOSIS
     Route: 048

REACTIONS (1)
  - Platelet count decreased [Unknown]
